FAERS Safety Report 19619047 (Version 1)
Quarter: 2021Q3

REPORT INFORMATION
  Report Type: Spontaneous
  Country: US (occurrence: US)
  Receive Date: 20210728
  Receipt Date: 20210728
  Transmission Date: 20211014
  Serious: Yes (Hospitalization, Other)
  Sender: FDA-Public Use
  Company Number: US-HIKMA PHARMACEUTICALS USA INC.-US-H14001-21-55019

PATIENT
  Age: 30 Year
  Sex: Female

DRUGS (2)
  1. METHYLPREDNISOLONE. [Suspect]
     Active Substance: METHYLPREDNISOLONE
     Route: 042
  2. METHYLPREDNISOLONE. [Suspect]
     Active Substance: METHYLPREDNISOLONE
     Indication: PRODUCT USED FOR UNKNOWN INDICATION
     Dosage: TAPERED
     Route: 042

REACTIONS (6)
  - Psychiatric symptom [Recovered/Resolved]
  - Mental disorder [Recovered/Resolved]
  - Hallucination, visual [Recovered/Resolved]
  - Mania [Recovered/Resolved]
  - Hallucination, auditory [Recovered/Resolved]
  - Insomnia [Recovered/Resolved]
